FAERS Safety Report 17660268 (Version 16)
Quarter: 2023Q1

REPORT INFORMATION
  Report Type: Spontaneous
  Country: US (occurrence: US)
  Receive Date: 20200413
  Receipt Date: 20230308
  Transmission Date: 20230417
  Serious: No
  Sender: FDA-Public Use
  Company Number: US-PFIZER INC-2020146675

PATIENT
  Age: 70 Year
  Sex: Female

DRUGS (3)
  1. IBRANCE [Suspect]
     Active Substance: PALBOCICLIB
     Indication: Breast cancer metastatic
     Dosage: 125 MG
  2. IBRANCE [Suspect]
     Active Substance: PALBOCICLIB
     Dosage: 100 MG
  3. IBRANCE [Suspect]
     Active Substance: PALBOCICLIB
     Dosage: 75 MG, CYCLIC (ONE TABLET A DAY FOR 21 DAYS THEN TAKE 14 DAYS OFF)
     Route: 048

REACTIONS (5)
  - Off label use [Unknown]
  - Product use issue [Unknown]
  - Neutrophil count decreased [Unknown]
  - Decreased immune responsiveness [Unknown]
  - Therapeutic response unexpected [Unknown]
